FAERS Safety Report 21424659 (Version 2)
Quarter: 2022Q4

REPORT INFORMATION
  Report Type: Report from Study
  Country: SA (occurrence: SA)
  Receive Date: 20221007
  Receipt Date: 20221013
  Transmission Date: 20230113
  Serious: Yes (Other)
  Sender: FDA-Public Use
  Company Number: SA-BAYER-2022A138568

PATIENT
  Age: 16 Year
  Sex: Male
  Weight: 33 kg

DRUGS (1)
  1. RIVAROXABAN [Suspect]
     Active Substance: RIVAROXABAN
     Indication: Product used for unknown indication
     Dosage: 10 MG, QD
     Route: 048

REACTIONS (3)
  - Epidural haemorrhage [Unknown]
  - Subarachnoid haemorrhage [Unknown]
  - Off label use [Unknown]
